FAERS Safety Report 5293892-8 (Version None)
Quarter: 2007Q2

REPORT INFORMATION
  Report Type: 
  Country: None (occurrence: None)
  Receive Date: 20070411
  Receipt Date: 20070330
  Transmission Date: 20071010
  Serious: Yes (Other)
  Sender: FDA-Public Use
  Company Number: US-PFIZER INC-2007025911

PATIENT
  Sex: Female

DRUGS (5)
  1. SULFASALAZINE [Suspect]
  2. IMURAN [Concomitant]
  3. ZOCOR [Concomitant]
  4. IMITREX [Concomitant]
     Dosage: FREQ:AS NEEDED
  5. VITAMINS [Concomitant]

REACTIONS (1)
  - COLITIS ULCERATIVE [None]
